FAERS Safety Report 6266548-2 (Version None)
Quarter: 2009Q3

REPORT INFORMATION
  Report Type: 
  Country: None (occurrence: None)
  Receive Date: 20090713
  Receipt Date: 20090702
  Transmission Date: 20100115
  Serious: Yes (Other)
  Sender: FDA-Public Use
  Company Number: SE-MERCK-0907SWE00002

PATIENT
  Age: 17 Year
  Sex: Female

DRUGS (5)
  1. SINGULAIR [Suspect]
     Indication: ASTHMA
     Route: 048
     Dates: start: 20090507, end: 20090531
  2. FLUTICASONE PROPIONATE AND SALMETEROL XINAFOATE [Concomitant]
     Route: 065
  3. LORATADINE [Concomitant]
     Route: 065
  4. FLUTICASONE PROPIONATE [Concomitant]
     Route: 065
  5. CROMOLYN SODIUM [Concomitant]
     Route: 065

REACTIONS (3)
  - NIGHTMARE [None]
  - OBSESSIVE THOUGHTS [None]
  - SUICIDAL IDEATION [None]
